FAERS Safety Report 8328366-0 (Version None)
Quarter: 2012Q2

REPORT INFORMATION
  Report Type: 
  Country: None (occurrence: None)
  Receive Date: 20120502
  Receipt Date: 20100726
  Transmission Date: 20120825
  Serious: No
  Sender: FDA-Public Use
  Company Number: US-TEVA-2010003444

PATIENT
  Sex: Female
  Weight: 79.45 kg

DRUGS (3)
  1. NUVIGIL [Suspect]
     Indication: CIRCADIAN RHYTHM SLEEP DISORDER
     Dosage: 150 MILLIGRAM;
     Route: 048
     Dates: start: 20100520, end: 20100601
  2. SERTRALINE HYDROCHLORIDE [Concomitant]
     Dosage: 50 MILLIGRAM;
     Route: 048
  3. NUVIGIL [Suspect]
     Indication: SOMNOLENCE

REACTIONS (2)
  - DYSPNOEA [None]
  - OXYGEN SATURATION DECREASED [None]
